FAERS Safety Report 9631197 (Version 1)
Quarter: 2013Q4

REPORT INFORMATION
  Report Type: Spontaneous
  Country: US (occurrence: US)
  Receive Date: 20131018
  Receipt Date: 20131018
  Transmission Date: 20140711
  Serious: Yes (Hospitalization)
  Sender: FDA-Public Use
  Company Number: US-ENDO PHARMACEUTICALS INC.-PHEB20130013

PATIENT
  Age: 1 Month
  Sex: Female

DRUGS (6)
  1. KEPPRA [Concomitant]
     Indication: CONVULSION
     Dosage: UNK
     Route: 065
     Dates: end: 20120719
  2. FOLINIC ACID [Concomitant]
     Indication: CONVULSION
     Dosage: UNK
     Route: 065
     Dates: end: 20120721
  3. TOPAMAX [Concomitant]
     Indication: CONVULSION
     Dosage: UNK
     Route: 065
  4. PHENOBARBITAL ELIXIR 20MG/5ML [Suspect]
     Indication: CONVULSION
     Dosage: UNK
     Route: 065
     Dates: end: 20120720
  5. CLONAZEPAM [Suspect]
     Indication: CONVULSION
     Dosage: UNK
     Route: 065
     Dates: end: 20120720
  6. SABRIL [Suspect]
     Indication: CONVULSION
     Dosage: 150MG/KG/DAY
     Route: 065
     Dates: start: 20120717, end: 20120728

REACTIONS (3)
  - Convulsion [Recovered/Resolved]
  - Oxygen saturation decreased [Recovered/Resolved]
  - Drug ineffective [Recovered/Resolved]
